FAERS Safety Report 7021934-8 (Version None)
Quarter: 2010Q3

REPORT INFORMATION
  Report Type: 
  Country: None (occurrence: None)
  Receive Date: 20100930
  Receipt Date: 20100728
  Transmission Date: 20110219
  Serious: Yes (Hospitalization)
  Sender: FDA-Public Use
  Company Number: US-BAYER-200928606NA

PATIENT
  Age: 22 Year
  Sex: Female
  Weight: 77 kg

DRUGS (4)
  1. YAZ [Suspect]
     Indication: CONTRACEPTION
     Route: 048
     Dates: start: 20071130, end: 20090610
  2. HYDROCODONE [Concomitant]
     Route: 065
     Dates: start: 20080128, end: 20090115
  3. IBUPROFEN [Concomitant]
     Indication: PAIN
     Dosage: TOTAL DAILY DOSE: 2400 MG  UNIT DOSE: 600 MG
     Route: 048
     Dates: start: 20080828
  4. IBUPROFEN [Concomitant]
     Route: 065
     Dates: start: 20080905

REACTIONS (8)
  - ABDOMINAL PAIN UPPER [None]
  - BILIARY COLIC [None]
  - CHOLECYSTITIS ACUTE [None]
  - CHOLELITHIASIS [None]
  - LOCALISED INTRAABDOMINAL FLUID COLLECTION [None]
  - MURPHY'S SIGN POSITIVE [None]
  - NAUSEA [None]
  - VOMITING [None]
